FAERS Safety Report 5822596-5 (Version None)
Quarter: 2008Q3

REPORT INFORMATION
  Report Type: 
  Country: None (occurrence: None)
  Receive Date: 20080723
  Receipt Date: 20080723
  Transmission Date: 20090109
  Serious: No
  Sender: FDA-Public Use
  Company Number: None

PATIENT
  Sex: Male

DRUGS (1)
  1. INCRELEX [Suspect]
     Dosage: 2.5MG BID SQ
     Route: 058
     Dates: start: 20080617, end: 20080627

REACTIONS (1)
  - LIP SWELLING [None]
